FAERS Safety Report 4352641-8 (Version None)
Quarter: 2004Q2

REPORT INFORMATION
  Report Type: 
  Country: None (occurrence: None)
  Receive Date: 20040504
  Receipt Date: 20020516
  Transmission Date: 20050107
  Serious: Yes (Hospitalization, Other)
  Sender: FDA-Public Use
  Company Number: US-MERCK-0205USA02113

PATIENT
  Age: 53 Year
  Sex: Female
  Weight: 55 kg

DRUGS (14)
  1. ATENOLOL [Concomitant]
     Route: 065
     Dates: end: 20010817
  2. PREMARIN [Concomitant]
     Route: 065
     Dates: start: 20010719
  3. PREMARIN [Concomitant]
     Route: 065
     Dates: end: 20010718
  4. PLENDIL [Concomitant]
     Route: 048
  5. LEVOXYL [Concomitant]
     Route: 048
     Dates: start: 20000810, end: 20010101
  6. LEVOXYL [Concomitant]
     Route: 048
     Dates: start: 20010101, end: 20010627
  7. LEVOXYL [Concomitant]
     Route: 048
     Dates: start: 20010628
  8. ZESTRIL [Concomitant]
     Route: 048
     Dates: start: 20000127, end: 20000101
  9. ZESTRIL [Concomitant]
     Route: 048
     Dates: start: 20000101
  10. ZESTRIL [Concomitant]
     Route: 048
     Dates: start: 20010420, end: 20010718
  11. ZESTRIL [Concomitant]
     Route: 048
     Dates: start: 20010719
  12. VIOXX [Suspect]
     Indication: HEADACHE
     Route: 048
     Dates: start: 20010806, end: 20010816
  13. ZOLOFT [Concomitant]
     Route: 048
     Dates: end: 20010718
  14. ZOLOFT [Concomitant]
     Route: 048
     Dates: start: 20010719

REACTIONS (17)
  - ASTHENIA [None]
  - ATHEROSCLEROSIS [None]
  - BACK PAIN [None]
  - BLOOD CHOLESTEROL INCREASED [None]
  - BLOOD CREATININE INCREASED [None]
  - BLOOD TRIGLYCERIDES INCREASED [None]
  - BREATH SOUNDS DECREASED [None]
  - CHOLELITHIASIS [None]
  - DIZZINESS [None]
  - GASTROOESOPHAGEAL REFLUX DISEASE [None]
  - HAEMORRHOIDS [None]
  - HEADACHE [None]
  - HYPERTENSION [None]
  - HYPOKALAEMIA [None]
  - INJURY [None]
  - PLEURITIC PAIN [None]
  - PNEUMONIA [None]
